FAERS Safety Report 8366798-5 (Version None)
Quarter: 2012Q2

REPORT INFORMATION
  Report Type: 
  Country: None (occurrence: None)
  Receive Date: 20120517
  Receipt Date: 20120509
  Transmission Date: 20120825
  Serious: Yes (Other)
  Sender: FDA-Public Use
  Company Number: US-ROCHE-1040253

PATIENT
  Sex: Male
  Weight: 77.18 kg

DRUGS (2)
  1. ACCUTANE [Suspect]
     Indication: ACNE
     Dates: start: 19840101, end: 19840201
  2. ACCUTANE [Suspect]
     Dates: start: 19830101, end: 19840101

REACTIONS (5)
  - ANXIETY [None]
  - INJURY [None]
  - DIVERTICULITIS [None]
  - INFLAMMATORY BOWEL DISEASE [None]
  - DEPRESSION [None]
